FAERS Safety Report 15795441 (Version 1)
Quarter: 2019Q1

REPORT INFORMATION
  Report Type: Report from Study
  Country: JP (occurrence: JP)
  Receive Date: 20190107
  Receipt Date: 20190107
  Transmission Date: 20190417
  Serious: Yes (Death, Hospitalization, Other)
  Sender: FDA-Public Use
  Company Number: JP-GILEAD-2018-0382433

PATIENT
  Age: 72 Year
  Sex: Male

DRUGS (20)
  1. AMBRISENTAN [Suspect]
     Active Substance: AMBRISENTAN
     Dosage: 10 MG, QD
     Route: 048
     Dates: start: 20121015, end: 20160525
  2. ITOROL [Concomitant]
     Active Substance: ISOSORBIDE MONONITRATE
     Dosage: UNK
     Dates: end: 20121014
  3. AMBRISENTAN [Suspect]
     Active Substance: AMBRISENTAN
     Dosage: 5 MG, QD
     Route: 048
     Dates: start: 20111226, end: 20121014
  4. RHEUMATREX [Suspect]
     Active Substance: METHOTREXATE SODIUM
     Indication: PRODUCT USED FOR UNKNOWN INDICATION
     Dosage: UNK
     Route: 048
     Dates: end: 20141221
  5. PROCYLIN [Concomitant]
     Active Substance: BERAPROST SODIUM
     Indication: PULMONARY ARTERIAL HYPERTENSION
     Dosage: UNK
     Dates: end: 20120209
  6. BERASUS LA [Concomitant]
     Dosage: UNK
     Dates: start: 20121119, end: 20130307
  7. LUPRAC [Concomitant]
     Active Substance: TORSEMIDE
     Dosage: UNK
     Dates: start: 20150511, end: 20150607
  8. ALFAROL [Concomitant]
     Active Substance: ALFACALCIDOL
     Dosage: UNK
     Dates: end: 20130721
  9. SPIRIVA [Concomitant]
     Active Substance: TIOTROPIUM BROMIDE MONOHYDRATE
     Dosage: UNK
     Dates: start: 20150406
  10. SAMSCA [Concomitant]
     Active Substance: TOLVAPTAN
     Dosage: UNK
     Dates: start: 20150703
  11. THEOLONG [Concomitant]
     Active Substance: THEOPHYLLINE ANHYDROUS
     Dosage: UNK
     Dates: end: 20150607
  12. BERASUS LA [Concomitant]
     Indication: PULMONARY ARTERIAL HYPERTENSION
     Dosage: UNK
     Dates: start: 20120210, end: 20121028
  13. SELARA [Concomitant]
     Active Substance: EPLERENONE
     Dosage: UNK
     Dates: start: 20150302
  14. REVATIO [Concomitant]
     Active Substance: SILDENAFIL CITRATE
     Indication: PULMONARY ARTERIAL HYPERTENSION
     Dosage: UNK
     Dates: start: 20121109
  15. FUROSEMIDE. [Concomitant]
     Active Substance: FUROSEMIDE
     Dosage: UNK
     Dates: end: 20121203
  16. ALDACTONE A [Concomitant]
     Active Substance: SPIRONOLACTONE
     Dosage: UNK
     Dates: start: 20120120, end: 20150301
  17. AMBRISENTAN [Suspect]
     Active Substance: AMBRISENTAN
     Indication: PULMONARY ARTERIAL HYPERTENSION
     Dosage: 2.5 MG, QD
     Route: 048
     Dates: start: 20111223, end: 20111225
  18. FUROSEMIDE. [Concomitant]
     Active Substance: FUROSEMIDE
     Dosage: UNK
     Dates: start: 20130128
  19. PREDONINE [Concomitant]
     Active Substance: PREDNISOLONE
     Dosage: UNK
     Dates: end: 20130721
  20. FOLIAMIN [Concomitant]
     Active Substance: FOLIC ACID
     Dosage: UNK
     Dates: end: 20150215

REACTIONS (8)
  - Pleural effusion [Fatal]
  - Hepatic function abnormal [Not Recovered/Not Resolved]
  - Hepatic cirrhosis [Recovering/Resolving]
  - Peritonitis bacterial [Recovering/Resolving]
  - Hepatic encephalopathy [Recovering/Resolving]
  - Cellulitis [Recovering/Resolving]
  - Cytopenia [Not Recovered/Not Resolved]
  - Hepatic function abnormal [Recovering/Resolving]

NARRATIVE: CASE EVENT DATE: 20120113
